FAERS Safety Report 9220750 (Version 2)
Quarter: 2013Q2

REPORT INFORMATION
  Report Type: Report from Study
  Country: US (occurrence: US)
  Receive Date: 20130409
  Receipt Date: 20130523
  Transmission Date: 20140414
  Serious: Yes (Other)
  Sender: FDA-Public Use
  Company Number: US-JNJFOC-20130401831

PATIENT
  Sex: Male

DRUGS (2)
  1. STELARA [Suspect]
     Indication: PSORIASIS
     Route: 058
     Dates: start: 201005, end: 201205
  2. STELARA [Suspect]
     Indication: PSORIASIS
     Route: 058
     Dates: start: 201305

REACTIONS (1)
  - Latent tuberculosis [Unknown]
